FAERS Safety Report 4297404-7 (Version None)
Quarter: 2004Q1

REPORT INFORMATION
  Report Type: 
  Country: None (occurrence: None)
  Receive Date: 20040217
  Receipt Date: 20040217
  Transmission Date: 20041129
  Serious: Yes (Hospitalization)
  Sender: FDA-Public Use
  Company Number: None

PATIENT
  Sex: Female
  Weight: 61.6892 kg

DRUGS (8)
  1. CARBOPLATIN [Suspect]
     Indication: LUNG NEOPLASM MALIGNANT
     Dosage: PRIOR TO ADMISSION
  2. LIPITOR [Concomitant]
  3. PAXIL [Concomitant]
  4. M.V.I. [Concomitant]
  5. CALCIUM [Concomitant]
  6. ZOFRAN [Concomitant]
  7. FESO4 [Concomitant]
  8. ARANESP [Concomitant]

REACTIONS (1)
  - ANAEMIA [None]
